FAERS Safety Report 10996790 (Version 1)
Quarter: 2015Q2

REPORT INFORMATION
  Report Type: Spontaneous
  Country: IT (occurrence: IT)
  Receive Date: 20150408
  Receipt Date: 20150408
  Transmission Date: 20150821
  Serious: Yes (Hospitalization, Other)
  Sender: FDA-Public Use
  Company Number: IT-TEVA-553339ACC

PATIENT
  Age: 56 Year
  Sex: Female

DRUGS (2)
  1. CALCIO LEVOFOLINATO TEVA - 175 MG POLVERE PER SOLUZIONE PER INFUSIONE [Suspect]
     Active Substance: LEVOLEUCOVORIN CALCIUM
     Indication: GASTRIC CANCER
     Dosage: 380 MG CYCLICAL, POWDER FOR SOLUTION FOR INFUSION
     Route: 042
     Dates: start: 20150323, end: 20150323
  2. OXALIPLATINO KABI - 5 MG/ML CONCENTRATO PER SOLUZIONE PER INFUSIONE [Suspect]
     Active Substance: OXALIPLATIN
     Indication: GASTRIC CANCER
     Dosage: 160 MG CYCLICAL, CONCENTRATE FOR SOLUTION FOR INFUSION
     Route: 042
     Dates: start: 20150323, end: 20150323

REACTIONS (4)
  - Flushing [Recovered/Resolved]
  - Vomiting [Recovered/Resolved]
  - Pruritus [Recovered/Resolved]
  - Chest pain [Recovered/Resolved]

NARRATIVE: CASE EVENT DATE: 20150323
